FAERS Safety Report 10407078 (Version 1)
Quarter: 2014Q1

REPORT INFORMATION
  Report Type: Spontaneous
  Country: US (occurrence: None)
  Receive Date: 20140109
  Receipt Date: 20140109
  Transmission Date: 20141002
  Serious: Yes (Hospitalization)
  Sender: FDA-Public Use
  Company Number: 385078N

PATIENT
  Age: 61 Year
  Sex: Female

DRUGS (1)
  1. LEVEMIR FLEXPEN [Suspect]
     Indication: TYPE 2 DIABETES MELLITUS
     Dosage: 35 U AM, 20 U PM
     Route: 058
     Dates: start: 2011, end: 20130729

REACTIONS (1)
  - Diabetic ketoacidosis [None]
